FAERS Safety Report 9413553 (Version 1)
Quarter: 2013Q2

REPORT INFORMATION
  Report Type: Spontaneous
  Country: US (occurrence: None)
  Receive Date: 20130403
  Receipt Date: 20130403
  Transmission Date: 20140414
  Serious: Yes (Hospitalization)
  Sender: FDA-Public Use
  Company Number: 30425

PATIENT
  Age: 67 Year
  Sex: Female
  Weight: 108.86 kg

DRUGS (18)
  1. GLASSIA [Suspect]
     Indication: ALPHA-1 ANTI-TRYPSIN DECREASED
     Dosage: 5500-6000 MG
     Route: 042
     Dates: start: 201102
  2. METFORMIN [Concomitant]
  3. ALDACTONE 25MG [Concomitant]
  4. DIOVAN 325 MG [Concomitant]
  5. NEXIUM 40 MG [Concomitant]
  6. VALIUM 5MG [Concomitant]
  7. PROZAC 40MG [Concomitant]
  8. WELLBUTRIN 450 MG [Concomitant]
  9. OXYCONTIN 40 MG [Concomitant]
  10. PERCOCET 5/325MG [Concomitant]
  11. SINGULAIR [Concomitant]
  12. SPIRIVA [Concomitant]
  13. SEROVENT [Concomitant]
  14. PROAIR [Concomitant]
  15. LIPITOR 40 MG [Concomitant]
  16. LOVAZA 1 G [Concomitant]
  17. VITAMIN D 50000 MCG [Concomitant]
  18. ONGLYZA 5MG [Concomitant]

REACTIONS (3)
  - Fatigue [None]
  - Dyspnoea [None]
  - Chest discomfort [None]
